FAERS Safety Report 7788773-1 (Version None)
Quarter: 2011Q3

REPORT INFORMATION
  Report Type: 
  Country: None (occurrence: None)
  Receive Date: 20110928
  Receipt Date: 20110919
  Transmission Date: 20111222
  Serious: Yes (Hospitalization, Other)
  Sender: FDA-Public Use
  Company Number: 2010US004233

PATIENT
  Age: 5 Year
  Sex: Female

DRUGS (1)
  1. TACROLIMUS [Suspect]
     Indication: DERMATITIS ATOPIC
     Dosage: 0.03%, TOPICAL
     Route: 061
     Dates: start: 20080910

REACTIONS (1)
  - ARNOLD-CHIARI MALFORMATION [None]
